FAERS Safety Report 4707295-5 (Version None)
Quarter: 2005Q3

REPORT INFORMATION
  Report Type: 
  Country: None (occurrence: None)
  Receive Date: 20050706
  Receipt Date: 20050309
  Transmission Date: 20060218
  Serious: Yes (Hospitalization, Disabling)
  Sender: FDA-Public Use
  Company Number: CA-MERCK-0503CAN00114

PATIENT
  Age: 56 Year
  Sex: Male
  Weight: 120 kg

DRUGS (41)
  1. VIOXX [Suspect]
     Indication: PAIN
     Route: 048
     Dates: start: 20010101, end: 20020101
  2. VIOXX [Suspect]
     Route: 048
     Dates: start: 20010101, end: 20020101
  3. QUINAPRIL HYDROCHLORIDE [Concomitant]
     Indication: BLOOD PRESSURE
     Route: 065
  4. QUINAPRIL HYDROCHLORIDE [Concomitant]
     Indication: POLYURIA
     Route: 065
  5. AMITRIPTYLINE HYDROCHLORIDE [Concomitant]
     Indication: ANXIETY
     Route: 065
     Dates: start: 20010801
  6. AMITRIPTYLINE HYDROCHLORIDE [Concomitant]
     Indication: SLEEP DISORDER THERAPY
     Route: 065
     Dates: start: 20010801
  7. ASPIRIN [Concomitant]
     Indication: ANTICOAGULANT THERAPY
     Route: 065
     Dates: start: 19990901
  8. PIROXICAM BETADEX [Concomitant]
     Indication: PAIN
     Route: 065
     Dates: start: 20010901
  9. CHOLESTYRAMINE RESIN [Concomitant]
     Indication: BLOOD CHOLESTEROL INCREASED
     Route: 065
     Dates: start: 20020101
  10. METHYLPREDNISOLONE ACETATE [Concomitant]
     Route: 065
     Dates: start: 20021101
  11. GLICLAZIDE [Concomitant]
     Indication: BLOOD GLUCOSE ABNORMAL
     Route: 065
  12. DOXEPIN HYDROCHLORIDE [Concomitant]
     Indication: ANXIETY
     Route: 065
     Dates: start: 20011101
  13. DOXEPIN HYDROCHLORIDE [Concomitant]
     Indication: SLEEP DISORDER THERAPY
     Route: 065
     Dates: start: 20011101
  14. VENLAFAXINE HYDROCHLORIDE [Concomitant]
     Indication: ANXIETY
     Route: 065
     Dates: start: 20021101
  15. VENLAFAXINE HYDROCHLORIDE [Concomitant]
     Indication: SLEEP DISORDER THERAPY
     Route: 065
     Dates: start: 20021101
  16. ACETAMINOPHEN AND CODEINE PHOSPHATE [Concomitant]
     Indication: PAIN
     Route: 065
     Dates: start: 20020101, end: 20040101
  17. ZOPICLONE [Concomitant]
     Indication: ANXIETY
     Route: 065
  18. ZOPICLONE [Concomitant]
     Indication: SLEEP DISORDER THERAPY
     Route: 065
  19. KETOROLAC TROMETHAMINE [Concomitant]
     Indication: PAIN
     Route: 065
     Dates: start: 20010101
  20. ATROPINE SULFATE AND DIPHENOXYLATE HYDROCHLORIDE [Concomitant]
     Indication: GASTROOESOPHAGEAL REFLUX DISEASE
     Route: 065
     Dates: start: 20020501
  21. ATROPINE SULFATE AND DIPHENOXYLATE HYDROCHLORIDE [Concomitant]
     Indication: DIARRHOEA
     Route: 065
     Dates: start: 20020501
  22. METFORMIN HYDROCHLORIDE [Concomitant]
     Indication: BLOOD GLUCOSE ABNORMAL
     Route: 065
     Dates: start: 19910901
  23. METRONIDAZOLE [Concomitant]
     Route: 065
  24. MORPHINE SULFATE [Concomitant]
     Indication: PAIN
     Route: 065
     Dates: start: 20020101, end: 20031101
  25. NAPROXEN [Concomitant]
     Indication: PAIN
     Route: 065
     Dates: start: 20010101
  26. LANSOPRAZOLE [Concomitant]
     Indication: GASTROOESOPHAGEAL REFLUX DISEASE
     Route: 065
     Dates: start: 20000101, end: 20020501
  27. LANSOPRAZOLE [Concomitant]
     Indication: DIARRHOEA
     Route: 065
     Dates: start: 20000101, end: 20020501
  28. LISINOPRIL [Concomitant]
     Route: 065
  29. AZITHROMYCIN [Concomitant]
     Route: 065
     Dates: start: 20020501
  30. ZOPICLONE [Concomitant]
     Indication: PAIN
     Route: 065
     Dates: start: 20020101, end: 20040101
  31. ESOMEPRAZOLE MAGNESIUM [Concomitant]
     Route: 065
     Dates: start: 20020501
  32. TEMAZEPAM [Concomitant]
     Route: 065
     Dates: start: 20020101
  33. NYSTATIN [Concomitant]
     Route: 065
     Dates: start: 20000101
  34. PAROXETINE HYDROCHLORIDE [Concomitant]
     Indication: ANXIETY
     Route: 065
  35. PAROXETINE HYDROCHLORIDE [Concomitant]
     Indication: SLEEP DISORDER THERAPY
     Route: 065
  36. ACETAMINOPHEN AND CODEINE PHOSPHATE [Concomitant]
     Route: 065
     Dates: start: 20020401
  37. GABAPENTIN [Concomitant]
     Route: 065
     Dates: start: 20020301
  38. GABAPENTIN [Concomitant]
     Route: 065
  39. ORLISTAT [Concomitant]
     Indication: WEIGHT DECREASED
     Route: 065
     Dates: start: 20020307
  40. ACETAMINOPHEN AND CODEINE PHOSPHATE [Concomitant]
     Route: 065
     Dates: start: 20020201
  41. CELECOXIB [Concomitant]
     Route: 065
     Dates: start: 20020101

REACTIONS (11)
  - CARDIAC DISORDER [None]
  - CEREBRAL INFARCTION [None]
  - CHEST PAIN [None]
  - COLON ADENOMA [None]
  - DIVERTICULITIS [None]
  - HIATUS HERNIA [None]
  - LEFT VENTRICULAR FAILURE [None]
  - MYOCARDIAL ISCHAEMIA [None]
  - PAPILLARY THYROID CANCER [None]
  - THROMBOPHLEBITIS SUPERFICIAL [None]
  - VARICES OESOPHAGEAL [None]
